FAERS Safety Report 6433501-5 (Version None)
Quarter: 2009Q4

REPORT INFORMATION
  Report Type: 
  Country: None (occurrence: None)
  Receive Date: 20091106
  Receipt Date: 20091106
  Transmission Date: 20100525
  Serious: Yes (Other)
  Sender: FDA-Public Use
  Company Number: None

PATIENT
  Age: 61 Year
  Sex: Male
  Weight: 51.1 kg

DRUGS (1)
  1. HEPARIN [Suspect]
     Indication: CEREBROVASCULAR ACCIDENT
     Dosage: 200-700 UNITS/HR  PROTOCOL CONTINUOUS IV DRIP
     Route: 041
     Dates: start: 20091019, end: 20091030

REACTIONS (1)
  - HEPARIN-INDUCED THROMBOCYTOPENIA [None]
